FAERS Safety Report 9588648 (Version 1)
Quarter: 2013Q4

REPORT INFORMATION
  Report Type: Spontaneous
  Country: US (occurrence: US)
  Receive Date: 20131003
  Receipt Date: 20131003
  Transmission Date: 20140711
  Serious: No
  Sender: FDA-Public Use
  Company Number: US-AMGEN-USASP2012065175

PATIENT
  Age: 56 Year
  Sex: Female
  Weight: 65.31 kg

DRUGS (12)
  1. ENBREL [Suspect]
     Indication: PRODUCT USED FOR UNKNOWN INDICATION
     Dosage: 25 MG, 2 TIMES/WK
  2. LEUCOVORIN CA [Concomitant]
     Dosage: 5 MG, UNK
     Route: 048
  3. LEVOTHYROXIN [Concomitant]
     Dosage: 175 MUG, UNK
     Route: 048
  4. MULTIVITAMINS, PLAIN [Concomitant]
     Dosage: UNK
     Route: 048
  5. MINERALS NOS [Concomitant]
     Dosage: UNK
     Route: 048
  6. FISH OIL [Concomitant]
     Dosage: UNK
     Route: 048
  7. VITAMIN D                          /00107901/ [Concomitant]
     Dosage: 1000 UNIT, UNK
     Route: 048
  8. FLAXSEED OIL [Concomitant]
     Dosage: UNK
     Route: 048
  9. VITAMIN B12                        /00056201/ [Concomitant]
     Dosage: 1000 UNK, CR
  10. CALCIUM D                          /00944201/ [Concomitant]
     Dosage: UNK
     Route: 048
  11. COQ [Concomitant]
     Dosage: 10 MG, UNK
     Route: 048
  12. VITAMIN B6 [Concomitant]
     Dosage: 250 MG, UNK
     Route: 048

REACTIONS (2)
  - Alopecia [Unknown]
  - Bronchitis [Unknown]
